FAERS Safety Report 8187990-9 (Version None)
Quarter: 2012Q1

REPORT INFORMATION
  Report Type: 
  Country: None (occurrence: None)
  Receive Date: 20120302
  Receipt Date: 20120220
  Transmission Date: 20120608
  Serious: Yes (Death)
  Sender: FDA-Public Use
  Company Number: 024305

PATIENT
  Sex: Male

DRUGS (1)
  1. MACUGEN [Suspect]

REACTIONS (1)
  - CARDIAC FAILURE [None]
